FAERS Safety Report 6646273-6 (Version None)
Quarter: 2010Q1

REPORT INFORMATION
  Report Type: 
  Country: None (occurrence: None)
  Receive Date: 20100323
  Receipt Date: 20100317
  Transmission Date: 20100710
  Serious: Yes (Death, Other)
  Sender: FDA-Public Use
  Company Number: US-BAYER-200943510NA

PATIENT
  Age: 59 Year
  Sex: Male
  Weight: 93 kg

DRUGS (7)
  1. SORAFENIB [Suspect]
     Indication: GALLBLADDER CANCER METASTATIC
     Dosage: TOTAL DAILY DOSE: 400 MG  UNIT DOSE: 200 MG
     Route: 048
     Dates: start: 20090501, end: 20091001
  2. SORAFENIB [Suspect]
     Dosage: TOTAL DAILY DOSE: 400 MG  UNIT DOSE: 100 MG
     Route: 048
     Dates: start: 20091117, end: 20091214
  3. OXALIPLATIN [Suspect]
     Indication: GALLBLADDER CANCER METASTATIC
     Dosage: UNIT DOSE: 85 MG/M2
     Route: 042
     Dates: start: 20091117, end: 20091201
  4. OXALIPLATIN [Suspect]
     Dosage: UNIT DOSE: 85 MG/M2
     Route: 042
     Dates: start: 20090501, end: 20091001
  5. CAPECITABINE [Suspect]
     Indication: GALLBLADDER CANCER METASTATIC
     Dosage: UNIT DOSE: 2250 MG/M2
     Route: 048
     Dates: start: 20091201, end: 20091203
  6. CAPECITABINE [Suspect]
     Dosage: UNIT DOSE: 2250 MG/M2
     Route: 048
     Dates: start: 20090501, end: 20091001
  7. CAPECITABINE [Suspect]
     Dosage: UNIT DOSE: 2250 MG/M2
     Route: 048
     Dates: start: 20090501, end: 20091001

REACTIONS (12)
  - ABDOMINAL PAIN [None]
  - ANAEMIA [None]
  - ASCITES [None]
  - ASPIRATION [None]
  - DEATH [None]
  - GALLBLADDER CANCER STAGE IV [None]
  - HAEMATOCHEZIA [None]
  - ILEUS [None]
  - MALNUTRITION [None]
  - MENTAL STATUS CHANGES [None]
  - NEUTROPENIA [None]
  - RENAL FAILURE ACUTE [None]
